FAERS Safety Report 4713131-3 (Version None)
Quarter: 2005Q3

REPORT INFORMATION
  Report Type: 
  Country: None (occurrence: None)
  Receive Date: 20050713
  Receipt Date: 20050713
  Transmission Date: 20060218
  Serious: Yes (Hospitalization)
  Sender: FDA-Public Use
  Company Number: None

PATIENT
  Sex: Female
  Weight: 44.5 kg

DRUGS (9)
  1. CYCLOPHOSPHAMIDE [Suspect]
     Indication: PINEALOBLASTOMA
     Dosage: 1400 MG IV
     Route: 042
     Dates: start: 20050401, end: 20050405
  2. VINCRISTINE [Suspect]
     Dosage: 2MG IV
     Route: 042
     Dates: start: 20050401, end: 20050405
  3. CISPLATIN [Suspect]
  4. NEUPOGEN [Concomitant]
  5. ZANTAC [Concomitant]
  6. ZOFRAN [Concomitant]
  7. NORVASC [Concomitant]
  8. BIOLENE [Concomitant]
  9. SODIUM THIOSULFATE [Concomitant]

REACTIONS (3)
  - DIALYSIS [None]
  - NEPHROPATHY TOXIC [None]
  - RENAL FAILURE ACUTE [None]
